FAERS Safety Report 12797304 (Version 2)
Quarter: 2017Q1

REPORT INFORMATION
  Report Type: Spontaneous
  Country: AU (occurrence: AU)
  Receive Date: 20160929
  Receipt Date: 20170216
  Transmission Date: 20170428
  Serious: Yes (Death)
  Sender: FDA-Public Use
  Company Number: AU-ACTELION-A-CH2016-142689

PATIENT
  Age: 64 Year
  Sex: Female
  Weight: 68 kg

DRUGS (1)
  1. OPSUMIT [Suspect]
     Active Substance: MACITENTAN
     Indication: PULMONARY HYPERTENSION
     Dosage: UNK
     Route: 048
     Dates: start: 20160516, end: 20160910

REACTIONS (4)
  - Right ventricular failure [Fatal]
  - Interstitial lung disease [Fatal]
  - Palliative care [Unknown]
  - Hypoxia [Fatal]

NARRATIVE: CASE EVENT DATE: 2016
